FAERS Safety Report 21541211 (Version 1)
Quarter: 2022Q4

REPORT INFORMATION
  Report Type: Spontaneous
  Country: ES (occurrence: ES)
  Receive Date: 20221102
  Receipt Date: 20221102
  Transmission Date: 20230113
  Serious: Yes (Other)
  Sender: FDA-Public Use
  Company Number: None

PATIENT
  Age: 70 Year
  Sex: Male

DRUGS (10)
  1. CLOPIDOGREL BISULFATE [Suspect]
     Active Substance: CLOPIDOGREL BISULFATE
     Indication: Angina pectoris
     Dosage: 75.0 MG AT BREAKFAST TABLET
     Route: 048
     Dates: start: 20221006
  2. APIXABAN [Suspect]
     Active Substance: APIXABAN
     Indication: Atrial fibrillation
     Dosage: 5 MG, Q12H
     Route: 048
     Dates: start: 20220502
  3. ASPIRIN [Suspect]
     Active Substance: ASPIRIN
     Indication: Angina pectoris
     Dosage: 100.0 MG AT BREAKFAST
     Route: 048
     Dates: start: 20221006
  4. SYMBICORT [Concomitant]
     Active Substance: BUDESONIDE\FORMOTEROL FUMARATE DIHYDRATE
     Indication: Dyspnoea
     Dosage: 2.0 PUFF C/12 H
     Route: 065
     Dates: start: 20211221
  5. BISOPROLOL FUMARATE [Concomitant]
     Active Substance: BISOPROLOL FUMARATE
     Indication: Angina pectoris
     Dosage: 2.5MG AT BREAKFAST
     Route: 048
     Dates: start: 20221006
  6. CONDROSAN [Concomitant]
     Indication: Osteoarthritis
     Dosage: 800.0 MG AT BREAKFAST
     Route: 048
     Dates: start: 20160212
  7. CAFFEINE CITRATE\NITROGLYCERIN [Concomitant]
     Active Substance: CAFFEINE CITRATE\NITROGLYCERIN
     Indication: Angina pectoris
     Dosage: 1.0MG EVERY 24H
     Route: 060
     Dates: start: 20221006
  8. PANTOPRAZOL CINFA [Concomitant]
     Indication: Aortic anastomosis
     Dosage: 40.0 MG AT BREAKFAST
     Route: 048
     Dates: start: 20221006
  9. TAMSULOSIN HYDROCHLORIDE [Concomitant]
     Active Substance: TAMSULOSIN HYDROCHLORIDE
     Indication: Renal colic
     Dosage: 0.4MG AT BREAKFAST
     Route: 048
     Dates: start: 20220303
  10. ZARATOR [ATORVASTATIN] [Concomitant]
     Indication: Angina pectoris
     Dosage: 80.0 MG AT DINNER
     Route: 048
     Dates: start: 20221005

REACTIONS (2)
  - Abdominal pain [Unknown]
  - Haematochezia [Unknown]

NARRATIVE: CASE EVENT DATE: 20221007
